FAERS Safety Report 6318866-7 (Version None)
Quarter: 2009Q3

REPORT INFORMATION
  Report Type: 
  Country: None (occurrence: None)
  Receive Date: 20090821
  Receipt Date: 20090811
  Transmission Date: 20100115
  Serious: Yes (Death)
  Sender: FDA-Public Use
  Company Number: US-ELI_LILLY_AND_COMPANY-US200908002524

PATIENT
  Age: 49 Year
  Sex: Male

DRUGS (3)
  1. STRATTERA [Suspect]
     Indication: ATTENTION DEFICIT/HYPERACTIVITY DISORDER
     Dosage: 60 MG, UNKNOWN
     Route: 065
  2. LEXAPRO [Concomitant]
     Dosage: 20 MG, DAILY (1/D)
     Route: 065
  3. TRAZODONE HCL [Concomitant]
     Dosage: 100 MG, EACH EVENING
     Route: 065

REACTIONS (1)
  - DEATH [None]
